FAERS Safety Report 21242598 (Version 1)
Quarter: 2022Q3

REPORT INFORMATION
  Report Type: Spontaneous
  Country: US (occurrence: US)
  Receive Date: 20220823
  Receipt Date: 20220823
  Transmission Date: 20221026
  Serious: Yes (Other)
  Sender: FDA-Public Use
  Company Number: US-APOTEX-2022AP011387

PATIENT
  Age: 42 Year
  Sex: Male

DRUGS (5)
  1. MYCOPHENOLATE SODIUM [Suspect]
     Active Substance: MYCOPHENOLATE SODIUM
     Indication: Chorioretinitis
     Dosage: 1440 MILLIGRAM, QD
     Route: 065
  2. INFLIXIMAB [Concomitant]
     Active Substance: INFLIXIMAB
     Indication: Chorioretinitis
     Dosage: 5 MILLIGRAM/KILOGRAM
     Route: 065
  3. INFLIXIMAB [Concomitant]
     Active Substance: INFLIXIMAB
     Dosage: 12.5 MILLIGRAM/KILOGRAM
     Route: 065
  4. PREDNISONE [Concomitant]
     Active Substance: PREDNISONE
     Indication: Product used for unknown indication
     Dosage: UNK
     Route: 048
  5. DEXAMETHASONE [Concomitant]
     Active Substance: DEXAMETHASONE
     Indication: Cystoid macular oedema
     Dosage: UNK

REACTIONS (2)
  - Leukopenia [Unknown]
  - Upper respiratory tract infection [Unknown]
